FAERS Safety Report 20220278 (Version 1)
Quarter: 2021Q4

REPORT INFORMATION
  Report Type: Report from Study
  Country: CA (occurrence: CA)
  Receive Date: 20211223
  Receipt Date: 20211223
  Transmission Date: 20220303
  Serious: Yes (Disabling)
  Sender: FDA-Public Use
  Company Number: CA-JNJFOC-20211144851

PATIENT
  Age: 40 Year
  Sex: Female

DRUGS (1)
  1. REMICADE [Suspect]
     Active Substance: INFLIXIMAB
     Indication: Crohn^s disease
     Route: 042
     Dates: start: 20211118

REACTIONS (4)
  - Mental disorder [Not Recovered/Not Resolved]
  - Cough [Unknown]
  - Mood swings [Unknown]
  - Hyperphagia [Unknown]

NARRATIVE: CASE EVENT DATE: 20211118
